FAERS Safety Report 9593083 (Version 2)
Quarter: 2013Q4

REPORT INFORMATION
  Report Type: Report from Study
  Country: US (occurrence: US)
  Receive Date: 20131004
  Receipt Date: 20131121
  Transmission Date: 20140711
  Serious: Yes (Hospitalization)
  Sender: FDA-Public Use
  Company Number: US-ROCHE-1284392

PATIENT
  Sex: Female

DRUGS (2)
  1. PULMOZYME [Suspect]
     Indication: CYSTIC FIBROSIS
     Dosage: 1 DAY
     Route: 065
     Dates: start: 201212
  2. ALBUTEROL [Concomitant]

REACTIONS (2)
  - Weight decreased [Recovered/Resolved]
  - Cough [Not Recovered/Not Resolved]
